FAERS Safety Report 4943238-7 (Version None)
Quarter: 2006Q1

REPORT INFORMATION
  Report Type: 
  Country: None (occurrence: None)
  Receive Date: 20060314
  Receipt Date: 20060307
  Transmission Date: 20060701
  Serious: Yes (Hospitalization)
  Sender: FDA-Public Use
  Company Number: PHNU2006DE01260

PATIENT
  Sex: Male

DRUGS (1)
  1. TRILEPTAL [Suspect]
     Indication: EPILEPSY
     Dates: start: 20050101

REACTIONS (3)
  - DEPRESSION [None]
  - MUSCULAR WEAKNESS [None]
  - MYALGIA [None]
